FAERS Safety Report 15225063 (Version 1)
Quarter: 2018Q3

REPORT INFORMATION
  Report Type: Report from Study
  Country: IT (occurrence: IT)
  Receive Date: 20180801
  Receipt Date: 20180801
  Transmission Date: 20181010
  Serious: Yes (Other)
  Sender: FDA-Public Use
  Company Number: IT-TEVA-2018-IT-933807

PATIENT
  Age: 51 Year
  Sex: Female

DRUGS (2)
  1. ATORVASTATIN [Suspect]
     Active Substance: ATORVASTATIN
     Indication: INTENTIONAL SELF-INJURY
     Route: 065
  2. CANRENONE [Suspect]
     Active Substance: CANRENONE
     Indication: INTENTIONAL SELF-INJURY
     Route: 065

REACTIONS (4)
  - Intentional self-injury [Recovering/Resolving]
  - Incorrect dosage administered [Recovering/Resolving]
  - Prescription drug used without a prescription [Recovering/Resolving]
  - Psychomotor hyperactivity [Recovering/Resolving]
